FAERS Safety Report 11090868 (Version 1)
Quarter: 2015Q2

REPORT INFORMATION
  Report Type: Spontaneous
  Country: US (occurrence: None)
  Receive Date: 20150504
  Receipt Date: 20150504
  Transmission Date: 20150821
  Serious: Yes (Life-Threatening, Hospitalization)
  Sender: FDA-Public Use
  Company Number: None

PATIENT
  Age: 38 Year
  Sex: Male
  Weight: 185.98 kg

DRUGS (1)
  1. CANAGLIFLOZIN 300 MG JANSSEN [Suspect]
     Active Substance: CANAGLIFLOZIN
     Indication: TYPE 2 DIABETES MELLITUS
     Dosage: ONE  QD ORAL
     Route: 048
     Dates: start: 20140501, end: 20150419

REACTIONS (7)
  - Blood glucose increased [None]
  - Diabetic ketoacidosis [None]
  - Asthenia [None]
  - Blood potassium decreased [None]
  - Weight decreased [None]
  - Metabolic acidosis [None]
  - Dyspnoea [None]

NARRATIVE: CASE EVENT DATE: 20150428
